FAERS Safety Report 13440262 (Version 1)
Quarter: 2017Q2

REPORT INFORMATION
  Report Type: Spontaneous
  Country: US (occurrence: US)
  Receive Date: 20170413
  Receipt Date: 20170413
  Transmission Date: 20170830
  Serious: No
  Sender: FDA-Public Use
  Company Number: US-ASTELLAS-2016US027314

PATIENT
  Sex: Male

DRUGS (2)
  1. TACROLIMUS. [Suspect]
     Active Substance: TACROLIMUS
     Indication: IMMUNOSUPPRESSION
     Dosage: 0.4 MG, TWICE DAILY
     Route: 048
     Dates: start: 20160706
  2. TACROLIMUS. [Suspect]
     Active Substance: TACROLIMUS
     Indication: GRAFT VERSUS HOST DISEASE
     Dosage: 0.5 MG, TWICE DAILY
     Route: 048
     Dates: end: 20160705

REACTIONS (2)
  - Colitis [Recovered/Resolved]
  - Off label use [Unknown]
